FAERS Safety Report 25417854 (Version 1)
Quarter: 2025Q2

REPORT INFORMATION
  Report Type: Other
  Country: US (occurrence: US)
  Receive Date: 20250610
  Receipt Date: 20250610
  Transmission Date: 20250717
  Serious: Yes (Other)
  Sender: ANI
  Company Number: US-ANIPHARMA-023107

PATIENT
  Age: 57 Year
  Sex: Male

DRUGS (16)
  1. LEUCOVORIN [Suspect]
     Active Substance: LEUCOVORIN\LEUCOVORIN CALCIUM
     Indication: Pancreatic neuroendocrine tumour
  2. CAPECITABINE [Concomitant]
     Active Substance: CAPECITABINE
     Indication: Pancreatic neuroendocrine tumour
  3. TEMOZOLOMIDE [Concomitant]
     Active Substance: TEMOZOLOMIDE
     Indication: Pancreatic neuroendocrine tumour
  4. LAROTRECTINIB [Concomitant]
     Active Substance: LAROTRECTINIB
     Indication: Pancreatic neuroendocrine tumour
  5. SELITRECTINIB [Concomitant]
     Active Substance: SELITRECTINIB
     Indication: Pancreatic neuroendocrine tumour
  6. GEMCITABINE [Concomitant]
     Active Substance: GEMCITABINE
     Indication: Pancreatic neuroendocrine tumour
  7. OXALIPLATIN [Concomitant]
     Active Substance: OXALIPLATIN
     Indication: Pancreatic neuroendocrine tumour
  8. FLUOROURACIL [Concomitant]
     Active Substance: FLUOROURACIL
     Indication: Pancreatic neuroendocrine tumour
  9. CARBOPLATIN [Concomitant]
     Active Substance: CARBOPLATIN
     Indication: Pancreatic neuroendocrine tumour
  10. ETOPOSIDE [Concomitant]
     Active Substance: ETOPOSIDE
     Indication: Pancreatic neuroendocrine tumour
  11. IPILIMUMAB [Concomitant]
     Active Substance: IPILIMUMAB
     Indication: Pancreatic neuroendocrine tumour
  12. NIVOLUMAB [Concomitant]
     Active Substance: NIVOLUMAB
     Indication: Pancreatic neuroendocrine tumour
  13. REPOTRECTINIB [Concomitant]
     Active Substance: REPOTRECTINIB
     Indication: Pancreatic neuroendocrine tumour
     Dates: start: 202203
  14. REPOTRECTINIB [Concomitant]
     Active Substance: REPOTRECTINIB
     Indication: Pancreatic neuroendocrine tumour
  15. SELITRECTINIB [Concomitant]
     Active Substance: SELITRECTINIB
     Indication: NTRK gene fusion cancer
  16. LAROTRECTINIB [Concomitant]
     Active Substance: LAROTRECTINIB
     Indication: NTRK gene fusion cancer

REACTIONS (6)
  - Pulmonary embolism [Unknown]
  - Neuropathy peripheral [Unknown]
  - Neuropathy peripheral [Unknown]
  - Fatigue [Unknown]
  - Nausea [Unknown]
  - Rash [Unknown]
